FAERS Safety Report 5064964-8 (Version None)
Quarter: 2006Q3

REPORT INFORMATION
  Report Type: 
  Country: None (occurrence: None)
  Receive Date: 20060726
  Receipt Date: 20060707
  Transmission Date: 20061208
  Serious: Yes (Hospitalization)
  Sender: FDA-Public Use
  Company Number: US200607001346

PATIENT
  Age: 54 Year
  Sex: Female

DRUGS (8)
  1. HUMALOG [Suspect]
     Indication: DIABETES MELLITUS
     Dosage: 2/D; SEE IMAGE
     Dates: start: 20040101
  2. HUMULIN N [Suspect]
     Indication: DIABETES MELLITUS
  3. HUMULIN N PEN (HUMULIN N PEN) [Concomitant]
  4. ACTOS [Concomitant]
  5. GLUCOPHAGE [Concomitant]
  6. QUINAPRIL HCL [Concomitant]
  7. ATENOLOL [Concomitant]
  8. CORTISONE ACETATE [Concomitant]

REACTIONS (20)
  - BLOOD CHOLESTEROL INCREASED [None]
  - BLOOD GLUCOSE INCREASED [None]
  - BONE CALLUS EXCESSIVE [None]
  - CHEST PAIN [None]
  - CONTUSION [None]
  - DEVICE FAILURE [None]
  - GRIP STRENGTH DECREASED [None]
  - HYPERHIDROSIS [None]
  - ILL-DEFINED DISORDER [None]
  - INCORRECT DOSE ADMINISTERED [None]
  - INJECTION SITE BRUISING [None]
  - MENTAL DISORDER [None]
  - MUSCLE SPASMS [None]
  - NERVOUSNESS [None]
  - NEUROPATHY PERIPHERAL [None]
  - PERIPHERAL COLDNESS [None]
  - PHARMACEUTICAL PRODUCT COMPLAINT [None]
  - STRESS [None]
  - VISION BLURRED [None]
  - WEIGHT INCREASED [None]
